FAERS Safety Report 7932600-6 (Version None)
Quarter: 2011Q4

REPORT INFORMATION
  Report Type: 
  Country: None (occurrence: None)
  Receive Date: 20111122
  Receipt Date: 20090923
  Transmission Date: 20120403
  Serious: No
  Sender: FDA-Public Use
  Company Number: 2009BI030704

PATIENT
  Sex: Female

DRUGS (1)
  1. TYSABRI [Suspect]
     Indication: MULTIPLE SCLEROSIS
     Route: 042
     Dates: start: 20090916

REACTIONS (11)
  - ANXIETY [None]
  - DEPRESSION [None]
  - MUSCLE SPASMS [None]
  - FATIGUE [None]
  - GAIT DISTURBANCE [None]
  - PARAESTHESIA [None]
  - MULTIPLE SCLEROSIS [None]
  - BALANCE DISORDER [None]
  - ASTHENIA [None]
  - APATHY [None]
  - INSOMNIA [None]
